FAERS Safety Report 6072211-3 (Version None)
Quarter: 2009Q1

REPORT INFORMATION
  Report Type: 
  Country: None (occurrence: None)
  Receive Date: 20090210
  Receipt Date: 20090202
  Transmission Date: 20090719
  Serious: Yes (Congenital Anomaly)
  Sender: FDA-Public Use
  Company Number: DE-ASTRAZENECA-2009PK00468

PATIENT

DRUGS (2)
  1. SEROQUEL XR [Suspect]
     Indication: DELUSIONAL DISORDER, PERSECUTORY TYPE
     Route: 064
     Dates: start: 20080401
  2. SERTRALINE [Suspect]
     Indication: DEPRESSION
     Route: 064
     Dates: start: 20080101, end: 20081201

REACTIONS (6)
  - ARNOLD-CHIARI MALFORMATION [None]
  - CONGENITAL CHOROID PLEXUS CYST [None]
  - MATERNAL DRUGS AFFECTING FOETUS [None]
  - NERVOUS SYSTEM DISORDER [None]
  - SELECTIVE ABORTION [None]
  - SPINA BIFIDA [None]
